FAERS Safety Report 16801745 (Version 1)
Quarter: 2019Q3

REPORT INFORMATION
  Report Type: Spontaneous
  Country: GB (occurrence: GB)
  Receive Date: 20190912
  Receipt Date: 20190912
  Transmission Date: 20191005
  Serious: Yes (Other)
  Sender: FDA-Public Use
  Company Number: GB-SA-2019SA250127

PATIENT
  Sex: Female
  Weight: 28.9 kg

DRUGS (1)
  1. ALDURAZYME [Suspect]
     Active Substance: LARONIDASE
     Dosage: 3000 UNITS IN 250ML SODIUM CHLORIDE 0.9% EVERY 7 DAYS
     Route: 065

REACTIONS (1)
  - Cardiac disorder [Unknown]
